FAERS Safety Report 11330646 (Version 2)
Quarter: 2015Q3

REPORT INFORMATION
  Report Type: Spontaneous
  Country: US (occurrence: US)
  Receive Date: 20150803
  Receipt Date: 20150902
  Transmission Date: 20151125
  Serious: No
  Sender: FDA-Public Use
  Company Number: US-GLAXOSMITHKLINE-US2015GSK089048

PATIENT
  Age: 75 Year
  Sex: Female

DRUGS (3)
  1. TAFINLAR [Suspect]
     Active Substance: DABRAFENIB MESYLATE
     Dosage: UNK
  2. TAFINLAR [Suspect]
     Active Substance: DABRAFENIB MESYLATE
     Dosage: 100 MG, BID
     Dates: start: 20150528
  3. MEKINIST [Suspect]
     Active Substance: TRAMETINIB DIMETHYL SULFOXIDE
     Indication: MALIGNANT MELANOMA
     Dosage: 0.5 MG, U
     Dates: start: 20150528

REACTIONS (10)
  - Dehydration [Unknown]
  - Skin discolouration [Not Recovered/Not Resolved]
  - Pyrexia [Unknown]
  - Scab [Not Recovered/Not Resolved]
  - Fluid intake reduced [Unknown]
  - Dehydration [Unknown]
  - Chills [Unknown]
  - Flushing [Unknown]
  - Rash pruritic [Not Recovered/Not Resolved]
  - Rash [Not Recovered/Not Resolved]

NARRATIVE: CASE EVENT DATE: 20150611
